FAERS Safety Report 11581726 (Version 2)
Quarter: 2015Q4

REPORT INFORMATION
  Report Type: Spontaneous
  Country: AT (occurrence: AT)
  Receive Date: 20151001
  Receipt Date: 20151005
  Transmission Date: 20160304
  Serious: Yes (Disabling)
  Sender: FDA-Public Use
  Company Number: AT-IPSEN BIOPHARMACEUTICALS, INC.-2015-4766

PATIENT
  Age: 65 Year
  Sex: Male
  Weight: 78 kg

DRUGS (5)
  1. DYSPORT [Suspect]
     Active Substance: ABOBOTULINUMTOXINA
     Indication: MEIGE^S SYNDROME
     Dosage: 200 UNITS
     Route: 065
  2. UROSIN [Concomitant]
     Active Substance: ALLOPURINOL
     Indication: PRODUCT USED FOR UNKNOWN INDICATION
     Dosage: NOT REPORTED
     Route: 065
  3. DYSPORT [Suspect]
     Active Substance: ABOBOTULINUMTOXINA
     Dosage: 500 U
     Route: 065
     Dates: start: 20130604, end: 20130604
  4. DYSPORT [Suspect]
     Active Substance: ABOBOTULINUMTOXINA
     Indication: PRODUCT USE ISSUE
     Dosage: NOT REPORTED
     Route: 065
     Dates: start: 20150615, end: 20150615
  5. XEOMIN [Suspect]
     Active Substance: INCOBOTULINUMTOXINA
     Indication: MEIGE^S SYNDROME
     Dosage: NOT REPORTED
     Route: 065
     Dates: start: 20150905, end: 20150905

REACTIONS (7)
  - Visual impairment [Unknown]
  - Inappropriate schedule of drug administration [Unknown]
  - Feeling abnormal [Unknown]
  - Drug effect decreased [Unknown]
  - Dyspnoea [Unknown]
  - Diplopia [Unknown]
  - Musculoskeletal discomfort [Unknown]

NARRATIVE: CASE EVENT DATE: 2015
